FAERS Safety Report 8908027 (Version 3)
Quarter: 2013Q1

REPORT INFORMATION
  Report Type: Spontaneous
  Country: US (occurrence: US)
  Receive Date: 20121113
  Receipt Date: 20130118
  Transmission Date: 20140127
  Serious: Yes (Other)
  Sender: FDA-Public Use
  Company Number: US-009507513-1210USA014570

PATIENT
  Sex: Female

DRUGS (5)
  1. VICTRELIS [Suspect]
     Indication: HEPATITIS C
     Dosage: 800 MG, Q8H
     Route: 048
     Dates: start: 201202, end: 201209
  2. PEGASYS [Suspect]
     Indication: HEPATITIS C
     Dosage: UNK, QW
     Route: 058
     Dates: start: 201201, end: 20121106
  3. RIBASPHERE [Suspect]
     Indication: HEPATITIS C
     Dosage: UNK
     Route: 048
     Dates: start: 201201, end: 201203
  4. RIBASPHERE [Suspect]
     Dosage: 800 MG, QD
     Route: 048
     Dates: start: 201203, end: 201203
  5. RIBASPHERE [Suspect]
     Dosage: 600 MG, QD
     Route: 048
     Dates: start: 201203, end: 20121106

REACTIONS (10)
  - Transfusion [Unknown]
  - Nausea [Unknown]
  - Abdominal pain upper [Unknown]
  - Swelling [Unknown]
  - Decreased appetite [Unknown]
  - Asthenia [Unknown]
  - Dizziness [Unknown]
  - Nephrolithiasis [Unknown]
  - Cholelithiasis [Unknown]
  - Weight decreased [Not Recovered/Not Resolved]
